FAERS Safety Report 20758064 (Version 1)
Quarter: 2022Q2

REPORT INFORMATION
  Report Type: Spontaneous
  Country: US (occurrence: US)
  Receive Date: 20220427
  Receipt Date: 20220427
  Transmission Date: 20220721
  Serious: No
  Sender: FDA-Public Use
  Company Number: US-PFIZER INC-202101259123

PATIENT
  Age: 72 Year
  Sex: Female
  Weight: 74.84 kg

DRUGS (1)
  1. CHANTIX [Suspect]
     Active Substance: VARENICLINE TARTRATE
     Indication: Smoking cessation therapy
     Dosage: 1 MG, DAILY (1MG BLUE PILL ONE A DAY, HALF IN MORNING AND HALF AT NIGHT)
     Dates: start: 2021

REACTIONS (4)
  - Nausea [Unknown]
  - Abdominal discomfort [Unknown]
  - Recalled product administered [Unknown]
  - Wrong technique in product usage process [Unknown]

NARRATIVE: CASE EVENT DATE: 20210101
